FAERS Safety Report 18174710 (Version 1)
Quarter: 2020Q3

REPORT INFORMATION
  Report Type: Spontaneous
  Country: US (occurrence: US)
  Receive Date: 20200820
  Receipt Date: 20200820
  Transmission Date: 20201103
  Serious: No
  Sender: FDA-Public Use
  Company Number: US-PFIZER INC-2020322621

PATIENT
  Age: 59 Year
  Sex: Female
  Weight: 81 kg

DRUGS (4)
  1. IBRANCE [Suspect]
     Active Substance: PALBOCICLIB
     Indication: BREAST CANCER
     Dosage: 125 MG, CYCLIC, [21 DAYS ON, 7 DAYS OFF]
     Dates: start: 20200619
  2. MELATONIN [Concomitant]
     Active Substance: MELATONIN
     Dosage: UNK
  3. LETROZOLE. [Concomitant]
     Active Substance: LETROZOLE
     Dosage: UNK
  4. DAILY VITE [ASCORBIC ACID;CALCIUM PANTOTHENATE;COLECALCIFEROL;CYANOCOB [Concomitant]
     Dosage: UNK

REACTIONS (1)
  - Nausea [Unknown]

NARRATIVE: CASE EVENT DATE: 2020
